FAERS Safety Report 8883017 (Version 2)
Quarter: 2012Q4

REPORT INFORMATION
  Report Type: Report from Study
  Country: GB (occurrence: GB)
  Receive Date: 20121102
  Receipt Date: 20121205
  Transmission Date: 20130627
  Serious: Yes (Other)
  Sender: FDA-Public Use
  Company Number: GB-B.I. PHARMACEUTICALS,INC./RIDGEFIELD-2012-UK-01499UK

PATIENT
  Age: 77 Year
  Sex: Male

DRUGS (5)
  1. DABIGATRAN [Suspect]
     Indication: ATRIAL FIBRILLATION
     Dosage: 300 mg
     Route: 048
     Dates: start: 20120901
  2. ERYTHROMYCIN [Concomitant]
     Indication: SINUSITIS
     Dosage: 500 mg
     Route: 048
     Dates: start: 20121019, end: 20121025
  3. SIMVASTATIN [Concomitant]
     Indication: HYPERCHOLESTEROLAEMIA
     Dosage: 10 mg
     Route: 048
  4. SOTALOL HYDROCHLORIDE [Concomitant]
     Indication: ARRHYTHMIA SUPRAVENTRICULAR
     Dosage: 80 mg
     Route: 048
  5. VALSARTAN [Concomitant]
     Indication: ESSENTIAL HYPERTENSION
     Route: 048

REACTIONS (13)
  - Hepatic steatosis [Unknown]
  - Abdominal pain [Unknown]
  - Dizziness [Unknown]
  - Sinusitis [Unknown]
  - Infection [Unknown]
  - Nausea [Recovered/Resolved]
  - Fatigue [Recovered/Resolved]
  - Feeling cold [Recovered/Resolved]
  - Malaise [Recovered/Resolved]
  - Asthenia [Recovered/Resolved]
  - Mood altered [Recovered/Resolved]
  - Feeling abnormal [Recovered/Resolved]
  - Memory impairment [Unknown]
